FAERS Safety Report 10132684 (Version 1)
Quarter: 2014Q2

REPORT INFORMATION
  Report Type: Spontaneous
  Country: US (occurrence: US)
  Receive Date: 20140428
  Receipt Date: 20140428
  Transmission Date: 20141212
  Serious: No
  Sender: FDA-Public Use
  Company Number: US-MALLINCKRODT-T201401214

PATIENT
  Age: 31 Year
  Sex: Male

DRUGS (4)
  1. HYDROCODONE/ACETAMINOPHEN [Suspect]
     Indication: PAIN
     Dosage: 2 TABS AM/ 2 TABS HS PRN
     Route: 065
     Dates: start: 20140131, end: 20140207
  2. OMEPRAZOLE [Concomitant]
     Indication: GASTROOESOPHAGEAL REFLUX DISEASE
     Dosage: 40 MG, QD
     Route: 048
  3. FAMOTIDINE [Concomitant]
     Indication: GASTROOESOPHAGEAL REFLUX DISEASE
     Dosage: 40 MG Q HS
     Route: 048
  4. KLONOPIN [Concomitant]
     Indication: BRUXISM
     Dosage: 1 QHS
     Route: 048

REACTIONS (1)
  - Headache [Recovered/Resolved]
